FAERS Safety Report 17730661 (Version 1)
Quarter: 2020Q2

REPORT INFORMATION
  Report Type: Spontaneous
  Country: FR (occurrence: FR)
  Receive Date: 20200430
  Receipt Date: 20200430
  Transmission Date: 20200714
  Serious: Yes (Death)
  Sender: FDA-Public Use
  Company Number: FR-JNJFOC-20200436611

PATIENT
  Age: 77 Year
  Sex: Female
  Weight: 72 kg

DRUGS (1)
  1. RISPERDAL [Suspect]
     Active Substance: RISPERIDONE
     Indication: AGITATION
     Route: 048
     Dates: start: 20190825, end: 20190923

REACTIONS (4)
  - Bedridden [Fatal]
  - Walking disability [Fatal]
  - Altered state of consciousness [Fatal]
  - Hypotonia [Fatal]

NARRATIVE: CASE EVENT DATE: 20190923
